FAERS Safety Report 4640291-5 (Version None)
Quarter: 2005Q2

REPORT INFORMATION
  Report Type: 
  Country: None (occurrence: None)
  Receive Date: 20050321
  Receipt Date: 20050202
  Transmission Date: 20051028
  Serious: Yes (Other)
  Sender: FDA-Public Use
  Company Number: US-JNJFOC-20041003541

PATIENT
  Age: 17 Year
  Sex: Female
  Weight: 61.2356 kg

DRUGS (2)
  1. ORTHO EVRA [Suspect]
     Indication: DYSMENORRHOEA
     Dosage: 1 DOSE(S), 3 IN 4 WEEK, TRANSDERMAL
     Route: 062
  2. SUDAFED (PSEUDOEPHEDRINE HYDROCHLORIDE) [Concomitant]

REACTIONS (4)
  - ARTHRALGIA [None]
  - LOSS OF CONSCIOUSNESS [None]
  - SINUS HEADACHE [None]
  - VAGINAL HAEMORRHAGE [None]
